FAERS Safety Report 11714912 (Version 2)
Quarter: 2015Q4

REPORT INFORMATION
  Report Type: Spontaneous
  Country: FR (occurrence: FR)
  Receive Date: 20151109
  Receipt Date: 20151117
  Transmission Date: 20160304
  Serious: Yes (Other)
  Sender: FDA-Public Use
  Company Number: FR-GLAXOSMITHKLINE-FR2015GSK158805

PATIENT
  Sex: Female

DRUGS (1)
  1. VENTOLINE EVOHALER [Suspect]
     Active Substance: ALBUTEROL SULFATE
     Indication: ASTHMATIC CRISIS

REACTIONS (4)
  - Drug ineffective [Unknown]
  - Wrong technique in product usage process [Unknown]
  - Product quality issue [Unknown]
  - Asthmatic crisis [Unknown]
